FAERS Safety Report 15422346 (Version 1)
Quarter: 2018Q3

REPORT INFORMATION
  Report Type: Spontaneous
  Country: US (occurrence: US)
  Receive Date: 20180924
  Receipt Date: 20180924
  Transmission Date: 20181010
  Serious: No
  Sender: FDA-Public Use
  Company Number: US-BAUSCH-BL-2017-025750

PATIENT
  Age: 56 Year
  Sex: Female
  Weight: 57.66 kg

DRUGS (6)
  1. MOVIPREP [Suspect]
     Active Substance: ASCORBIC ACID\POLYETHYLENE GLYCOL 3350\POTASSIUM CHLORIDE\SODIUM ASCORBATE\SODIUM CHLORIDE\SODIUM SULFATE
     Indication: COMPUTERISED TOMOGRAM
     Dosage: FIRST DOSE
     Route: 048
     Dates: start: 201708, end: 201708
  2. SINGULAIR [Concomitant]
     Active Substance: MONTELUKAST SODIUM
     Indication: HYPERSENSITIVITY
     Route: 048
     Dates: start: 2005
  3. ADVAIR HFA [Concomitant]
     Active Substance: FLUTICASONE PROPIONATE\SALMETEROL XINAFOATE
     Indication: ASTHMA
     Dosage: STRENGHT: 250 MCG/50 MCG?ONE PUFF
     Dates: start: 2005
  4. ADVAIR HFA [Concomitant]
     Active Substance: FLUTICASONE PROPIONATE\SALMETEROL XINAFOATE
     Indication: HYPERSENSITIVITY
  5. SINGULAIR [Concomitant]
     Active Substance: MONTELUKAST SODIUM
     Indication: ASTHMA
  6. GLUCOSAMINE CHONDROITIN [Concomitant]
     Active Substance: CHONDROITIN SULFATE (BOVINE)\GLUCOSAMINE HYDROCHLORIDE
     Indication: SUPPLEMENTATION THERAPY
     Route: 048
     Dates: start: 201705

REACTIONS (6)
  - Feeling abnormal [Recovered/Resolved]
  - Initial insomnia [Recovered/Resolved]
  - Drug intolerance [Recovered/Resolved]
  - Nausea [Recovered/Resolved]
  - Treatment noncompliance [Unknown]
  - Malaise [Recovered/Resolved]

NARRATIVE: CASE EVENT DATE: 201708
